FAERS Safety Report 7735080-9 (Version None)
Quarter: 2011Q3

REPORT INFORMATION
  Report Type: 
  Country: None (occurrence: None)
  Receive Date: 20110817
  Receipt Date: 20101110
  Transmission Date: 20111222
  Serious: No
  Sender: FDA-Public Use
  Company Number: 20107944

PATIENT
  Sex: Female

DRUGS (3)
  1. LIORESAL [Suspect]
     Indication: MUSCLE SPASTICITY
     Dosage: MCG, DAILY, INTRATHECAL
     Route: 037
  2. BUPIVACAINE HCL [Concomitant]
  3. DILAUDID [Concomitant]

REACTIONS (3)
  - IMPLANT SITE PAIN [None]
  - PAIN [None]
  - THERAPY CESSATION [None]
